FAERS Safety Report 14649956 (Version 1)
Quarter: 2018Q1

REPORT INFORMATION
  Report Type: Spontaneous
  Country: CH (occurrence: CH)
  Receive Date: 20180316
  Receipt Date: 20180316
  Transmission Date: 20180509
  Serious: Yes (Other)
  Sender: FDA-Public Use
  Company Number: CH-ALLERGAN-1813252US

PATIENT
  Sex: Female

DRUGS (1)
  1. URSODEOXYCHOLIC ACID - BP [Suspect]
     Active Substance: URSODIOL
     Indication: CHOLESTASIS OF PREGNANCY
     Dosage: 900 MG, BID
     Route: 065

REACTIONS (4)
  - Off label use [Unknown]
  - Stillbirth [Unknown]
  - Exposure during pregnancy [Unknown]
  - Contraindicated drug prescribed [Unknown]
